FAERS Safety Report 8114999-3 (Version None)
Quarter: 2012Q1

REPORT INFORMATION
  Report Type: 
  Country: None (occurrence: None)
  Receive Date: 20120131
  Receipt Date: 20120109
  Transmission Date: 20120608
  Serious: Yes (Hospitalization)
  Sender: FDA-Public Use
  Company Number: 0224709

PATIENT
  Age: 26 Year
  Sex: Female

DRUGS (1)
  1. TACHOSIL [Suspect]
     Indication: SURGERY
     Dates: start: 20100101

REACTIONS (2)
  - PANCREATITIS ACUTE [None]
  - POST PROCEDURAL COMPLICATION [None]
